FAERS Safety Report 6083096-3 (Version None)
Quarter: 2009Q1

REPORT INFORMATION
  Report Type: 
  Country: None (occurrence: None)
  Receive Date: 20090219
  Receipt Date: 20090211
  Transmission Date: 20090719
  Serious: Yes (Life-Threatening)
  Sender: FDA-Public Use
  Company Number: GB-RANBAXY-2009RR-21848

PATIENT
  Age: 31 Year
  Sex: Female

DRUGS (17)
  1. CLARITHROMYCIN [Suspect]
     Indication: INFECTION
     Dosage: 250 MG, BID
     Dates: start: 20090129, end: 20090202
  2. CLARITHROMYCIN [Suspect]
     Dosage: UNK
  3. CLARITHROMYCIN [Suspect]
     Dosage: 400 MG, UNK
     Route: 042
     Dates: start: 20090202
  4. VANCOMYCIN HYDROCHLORIDE [Suspect]
     Indication: INFECTION
     Dosage: 1 G, UNK
     Route: 042
     Dates: start: 20090202, end: 20090202
  5. VANCOMYCIN HYDROCHLORIDE [Suspect]
     Dosage: 500 MG, QID
     Dates: start: 20090129, end: 20090202
  6. AZATHIOPRINE [Concomitant]
  7. CALCICHEW D3 [Concomitant]
     Dosage: 1 DF, BID
  8. CIPROFLOXACIN [Concomitant]
     Dosage: 250 MG, BID
     Dates: start: 20090129
  9. FLUCLOXACILLIN [Concomitant]
     Dosage: 500 MG, QID
     Dates: start: 20090129
  10. METARAMINOL [Concomitant]
     Dosage: 0.6 MG, UNK
  11. MORPHINE [Concomitant]
     Dosage: 6 MG, UNK
  12. ONDANSETRON [Concomitant]
     Dosage: 4 MG, UNK
     Dates: start: 20090202, end: 20090202
  13. PARACETAMOL [Concomitant]
     Dosage: 1 G, QID
  14. PENTASA [Concomitant]
     Dosage: 2 G, BID
     Route: 048
  15. PROPOFOL [Concomitant]
     Dosage: 150 MG, UNK
     Dates: start: 20090202, end: 20090202
  16. REMIFENTANIL [Concomitant]
     Dosage: UNK
     Dates: start: 20090202, end: 20090202
  17. ROCURONIUM BROMIDE [Concomitant]
     Dosage: 30 MG, UNK
     Dates: start: 20090202, end: 20090202

REACTIONS (6)
  - BLOOD PRESSURE DECREASED [None]
  - DRUG HYPERSENSITIVITY [None]
  - EYE SWELLING [None]
  - LIP SWELLING [None]
  - TACHYCARDIA [None]
  - WHEEZING [None]
